FAERS Safety Report 17541740 (Version 1)
Quarter: 2020Q1

REPORT INFORMATION
  Report Type: Spontaneous
  Country: ES (occurrence: ES)
  Receive Date: 20200313
  Receipt Date: 20200313
  Transmission Date: 20200409
  Serious: Yes (Other)
  Sender: FDA-Public Use
  Company Number: ES-REGENERON PHARMACEUTICALS, INC.-2020-24584

PATIENT

DRUGS (3)
  1. EYLEA [Suspect]
     Active Substance: AFLIBERCEPT
     Dosage: UNK
     Dates: start: 201912, end: 201912
  2. EYLEA [Suspect]
     Active Substance: AFLIBERCEPT
     Dosage: LAST INJECTION
     Dates: start: 202002, end: 202002
  3. EYLEA [Suspect]
     Active Substance: AFLIBERCEPT
     Indication: PRODUCT USED FOR UNKNOWN INDICATION
     Dosage: UNK

REACTIONS (2)
  - Toxic epidermal necrolysis [Unknown]
  - Toxic epidermal necrolysis [Unknown]

NARRATIVE: CASE EVENT DATE: 201912
